FAERS Safety Report 23771513 (Version 1)
Quarter: 2024Q2

REPORT INFORMATION
  Report Type: Spontaneous
  Country: US (occurrence: US)
  Receive Date: 20240423
  Receipt Date: 20240423
  Transmission Date: 20240715
  Serious: No
  Sender: FDA-Public Use
  Company Number: US-Accord-356177

PATIENT
  Age: 83 Year
  Sex: Female
  Weight: 76.2 kg

DRUGS (3)
  1. SIMVASTATIN [Suspect]
     Active Substance: SIMVASTATIN
     Indication: Blood cholesterol
     Dosage: STRENGTH: 10MG, DOSE: 2 10MG TABLETS DAILY
     Route: 048
  2. METOPROLOL [Concomitant]
     Active Substance: METOPROLOL
  3. SYNTHROID [Concomitant]
     Active Substance: LEVOTHYROXINE SODIUM
     Indication: Thyroid disorder
     Dosage: DOSE: 88MCG DAILY

REACTIONS (3)
  - Palpitations [Not Recovered/Not Resolved]
  - Cardiac disorder [Not Recovered/Not Resolved]
  - Recalled product administered [Unknown]

NARRATIVE: CASE EVENT DATE: 20230323
